FAERS Safety Report 22161045 (Version 1)
Quarter: 2023Q1

REPORT INFORMATION
  Report Type: Spontaneous
  Country: FR (occurrence: FR)
  Receive Date: 20230331
  Receipt Date: 20230331
  Transmission Date: 20230418
  Serious: Yes (Other)
  Sender: FDA-Public Use
  Company Number: None

PATIENT
  Age: 38 Year
  Sex: Female
  Weight: 55.3 kg

DRUGS (11)
  1. CIPROFLOXACIN LACTATE [Interacting]
     Active Substance: CIPROFLOXACIN LACTATE
     Indication: Pancreatic carcinoma
     Route: 042
     Dates: start: 20230201, end: 20230206
  2. AMOXICILLIN [Interacting]
     Active Substance: AMOXICILLIN
     Indication: Cholangitis infective
     Dosage: 3 G, QD
     Route: 042
     Dates: start: 20230201
  3. AUGMENTIN [Interacting]
     Active Substance: AMOXICILLIN\CLAVULANATE POTASSIUM
     Indication: Cholangitis infective
     Route: 042
     Dates: start: 20230201
  4. ONDANSETRON [Concomitant]
     Active Substance: ONDANSETRON
  5. GABAPENTIN [Concomitant]
     Active Substance: GABAPENTIN
  6. SODIUM CHLORIDE [Concomitant]
     Active Substance: SODIUM CHLORIDE
  7. URSODIOL [Concomitant]
     Active Substance: URSODIOL
  8. PANCREATIN [Concomitant]
     Active Substance: PANCRELIPASE
  9. ACETAMINOPHEN [Concomitant]
     Active Substance: ACETAMINOPHEN
  10. LOPERAMIDE HYDROCHLORIDE [Concomitant]
     Active Substance: LOPERAMIDE HYDROCHLORIDE
  11. ENOXAPARIN SODIUM [Concomitant]
     Active Substance: ENOXAPARIN SODIUM

REACTIONS (2)
  - Drug chemical incompatibility [Recovered/Resolved]
  - Device occlusion [Recovered/Resolved]

NARRATIVE: CASE EVENT DATE: 20230204
